FAERS Safety Report 14232863 (Version 2)
Quarter: 2018Q1

REPORT INFORMATION
  Report Type: Report from Study
  Country: US (occurrence: US)
  Receive Date: 20171129
  Receipt Date: 20180120
  Transmission Date: 20180508
  Serious: Yes (Hospitalization)
  Sender: FDA-Public Use
  Company Number: PHEH2017US038266

PATIENT
  Age: 82 Year
  Sex: Female
  Weight: 61.3 kg

DRUGS (2)
  1. VOTRIENT [Suspect]
     Active Substance: PAZOPANIB HYDROCHLORIDE
     Indication: PRODUCT USED FOR UNKNOWN INDICATION
     Route: 065
  2. VOTRIENT [Suspect]
     Active Substance: PAZOPANIB HYDROCHLORIDE
     Indication: RENAL CELL CARCINOMA
     Dosage: 800 UNK, UNK
     Route: 048
     Dates: start: 20171010, end: 20171106

REACTIONS (9)
  - Hypertension [Recovering/Resolving]
  - Nausea [Unknown]
  - Liver injury [Unknown]
  - Decreased appetite [Unknown]
  - Pruritus [Unknown]
  - Fatigue [Unknown]
  - Liver function test abnormal [Recovering/Resolving]
  - Jaundice [Unknown]
  - Chromaturia [Unknown]

NARRATIVE: CASE EVENT DATE: 20171024
